FAERS Safety Report 23439811 (Version 1)
Quarter: 2024Q1

REPORT INFORMATION
  Report Type: Spontaneous
  Country: AU (occurrence: AU)
  Receive Date: 20240124
  Receipt Date: 20240124
  Transmission Date: 20240409
  Serious: Yes (Other)
  Sender: FDA-Public Use
  Company Number: AU-BAUSCH-BL-2024-001033

PATIENT
  Age: 23 Year
  Sex: Female

DRUGS (11)
  1. BUDESONIDE [Suspect]
     Active Substance: BUDESONIDE
     Indication: Product used for unknown indication
     Route: 065
  2. ENTYVIO [Suspect]
     Active Substance: VEDOLIZUMAB
     Indication: Colitis ulcerative
     Route: 042
     Dates: start: 20210921
  3. ENTYVIO [Suspect]
     Active Substance: VEDOLIZUMAB
     Route: 058
     Dates: start: 202206
  4. MERCAPTOPURINE [Suspect]
     Active Substance: MERCAPTOPURINE
     Indication: Product used for unknown indication
     Route: 065
     Dates: start: 202207
  5. MERCAPTOPURINE [Suspect]
     Active Substance: MERCAPTOPURINE
     Route: 065
  6. MERCAPTOPURINE [Suspect]
     Active Substance: MERCAPTOPURINE
     Route: 065
     Dates: start: 202101
  7. MERCAPTOPURINE [Suspect]
     Active Substance: MERCAPTOPURINE
     Route: 065
     Dates: start: 2021
  8. MERCAPTOPURINE [Suspect]
     Active Substance: MERCAPTOPURINE
     Route: 065
     Dates: start: 202108
  9. MESALAMINE [Suspect]
     Active Substance: MESALAMINE
     Indication: Product used for unknown indication
     Route: 065
     Dates: start: 2020
  10. MESALAMINE [Suspect]
     Active Substance: MESALAMINE
     Route: 065
  11. MESALAMINE [Suspect]
     Active Substance: MESALAMINE
     Indication: Colitis ulcerative
     Route: 065
     Dates: start: 2020

REACTIONS (4)
  - Colitis ulcerative [Recovered/Resolved]
  - Iron deficiency [Unknown]
  - Upper respiratory tract infection [Unknown]
  - Headache [Unknown]

NARRATIVE: CASE EVENT DATE: 20201001
